FAERS Safety Report 19183271 (Version 2)
Quarter: 2021Q2

REPORT INFORMATION
  Report Type: Spontaneous
  Country: KR (occurrence: KR)
  Receive Date: 20210427
  Receipt Date: 20210531
  Transmission Date: 20210717
  Serious: Yes (Hospitalization, Other)
  Sender: FDA-Public Use
  Company Number: KR-UNITED THERAPEUTICS-UNT-2021-007253

PATIENT
  Age: 56 Year
  Sex: Female
  Weight: 52.99 kg

DRUGS (4)
  1. REMODULIN [Suspect]
     Active Substance: TREPROSTINIL
     Indication: PULMONARY ARTERIAL HYPERTENSION
     Dosage: UNK, CONTINUING
     Route: 058
     Dates: start: 20210330
  2. REMODULIN [Suspect]
     Active Substance: TREPROSTINIL
     Dosage: 0.070 ?G/KG, CONTINUING
     Route: 058
  3. REMODULIN [Suspect]
     Active Substance: TREPROSTINIL
     Dosage: 0.074 ?G/KG, CONTINUING
     Route: 058
     Dates: start: 20210420
  4. REMODULIN [Suspect]
     Active Substance: TREPROSTINIL
     Dosage: UNK, CONTINUING (INCREASE THE DOSE BY 2 NG/KG/MIN EVERY 8 HOURS TO 70 NG/KG/MIN)
     Route: 058
     Dates: start: 20210409

REACTIONS (3)
  - Vomiting [Recovered/Resolved]
  - Pneumonia [Recovered/Resolved]
  - Dizziness [Recovered/Resolved]

NARRATIVE: CASE EVENT DATE: 20210414
